FAERS Safety Report 4855999-6 (Version None)
Quarter: 2005Q4

REPORT INFORMATION
  Report Type: 
  Country: None (occurrence: None)
  Receive Date: 20051216
  Receipt Date: 20051209
  Transmission Date: 20060501
  Serious: Yes (Hospitalization, Other)
  Sender: FDA-Public Use
  Company Number: US-JNJFOC-20051203118

PATIENT
  Sex: Male
  Weight: 97.52 kg

DRUGS (8)
  1. DURAGESIC-100 [Suspect]
     Route: 062
  2. LOPID [Concomitant]
     Route: 048
  3. NORVASC [Concomitant]
     Route: 048
  4. ZOLOFT [Concomitant]
     Indication: DEPRESSION
     Route: 048
  5. DIOVAN [Concomitant]
     Route: 048
  6. GLYBURIDE [Concomitant]
     Route: 048
  7. ALDACTONE [Concomitant]
     Indication: BLOOD PRESSURE
     Route: 048
  8. PROTONIX [Concomitant]
     Route: 048

REACTIONS (2)
  - FALL [None]
  - HIP FRACTURE [None]
